FAERS Safety Report 6032610-2 (Version None)
Quarter: 2009Q1

REPORT INFORMATION
  Report Type: 
  Country: None (occurrence: None)
  Receive Date: 20090109
  Receipt Date: 20090105
  Transmission Date: 20090719
  Serious: Yes (Hospitalization, Other)
  Sender: FDA-Public Use
  Company Number: PHBS2009US00445

PATIENT
  Age: 14 Year
  Sex: Male

DRUGS (7)
  1. BACLOFEN [Suspect]
     Indication: CEREBRAL PALSY
     Dosage: 800 UG/DAY
     Route: 037
  2. ACETAMINOPHEN [Concomitant]
  3. CODEINE SUL TAB [Concomitant]
  4. IBUPROFEN TABLETS [Concomitant]
  5. PROPYLENE GLYCOL [Concomitant]
  6. FAMOTIDINE [Concomitant]
  7. LORATADINE [Concomitant]

REACTIONS (19)
  - ABDOMINAL PAIN [None]
  - AGITATION [None]
  - ALANINE AMINOTRANSFERASE INCREASED [None]
  - ASPARTATE AMINOTRANSFERASE INCREASED [None]
  - BLOOD PRESSURE INCREASED [None]
  - CLONUS [None]
  - GASTRITIS [None]
  - HAEMATEMESIS [None]
  - HYPERHIDROSIS [None]
  - HYPERREFLEXIA [None]
  - MELAENA [None]
  - MUSCLE SPASMS [None]
  - MUSCLE SPASTICITY [None]
  - OESOPHAGITIS [None]
  - RESTLESS LEGS SYNDROME [None]
  - SEROTONIN SYNDROME [None]
  - TREMOR [None]
  - UPPER GASTROINTESTINAL HAEMORRHAGE [None]
  - WITHDRAWAL SYNDROME [None]
